FAERS Safety Report 25586868 (Version 1)
Quarter: 2025Q3

REPORT INFORMATION
  Report Type: Spontaneous
  Country: US (occurrence: US)
  Receive Date: 20250721
  Receipt Date: 20250721
  Transmission Date: 20251021
  Serious: No
  Sender: Phathom Pharmaceuticals
  Company Number: US-PHATHOM PHARMACEUTICALS INC.-2025PHT01650

PATIENT
  Age: 83 Year
  Sex: Female

DRUGS (12)
  1. VOQUEZNA [Suspect]
     Active Substance: VONOPRAZAN FUMARATE
     Dosage: 10 MG, 1X/DAY
     Route: 048
     Dates: start: 20250509
  2. ORENCIA [Concomitant]
     Active Substance: ABATACEPT
  3. PEPCID [Concomitant]
     Active Substance: FAMOTIDINE
  4. ALBUTEROL SULFATE [Concomitant]
     Active Substance: ALBUTEROL SULFATE
  5. BREO ELLIPTA [Concomitant]
     Active Substance: FLUTICASONE FUROATE\VILANTEROL TRIFENATATE
  6. VALACYCLOVIR HYDROCHLORIDE [Concomitant]
     Active Substance: VALACYCLOVIR HYDROCHLORIDE
  7. JARDIANCE [Concomitant]
     Active Substance: EMPAGLIFLOZIN
  8. PROLIA [Concomitant]
     Active Substance: DENOSUMAB
  9. LOSARTAN [Concomitant]
     Active Substance: LOSARTAN
  10. ROSUVASTATIN [Concomitant]
     Active Substance: ROSUVASTATIN
  11. ELIQUIS [Concomitant]
     Active Substance: APIXABAN
  12. LEVOTHYROXINE [Concomitant]
     Active Substance: LEVOTHYROXINE

REACTIONS (3)
  - Bladder discomfort [Not Recovered/Not Resolved]
  - Anorectal discomfort [Not Recovered/Not Resolved]
  - Abdominal pain upper [Not Recovered/Not Resolved]

NARRATIVE: CASE EVENT DATE: 20250623
